FAERS Safety Report 7602949-5 (Version None)
Quarter: 2011Q3

REPORT INFORMATION
  Report Type: 
  Country: None (occurrence: None)
  Receive Date: 20110712
  Receipt Date: 20110324
  Transmission Date: 20111222
  Serious: No
  Sender: FDA-Public Use
  Company Number: A0919828A

PATIENT
  Age: 54 Year
  Sex: Male

DRUGS (2)
  1. NO CONCURRENT MEDICATION [Concomitant]
  2. JALYN [Suspect]
     Dosage: .5MG PER DAY
     Route: 048
     Dates: start: 20110315, end: 20110323

REACTIONS (1)
  - EJACULATION DISORDER [None]
